FAERS Safety Report 26079524 (Version 2)
Quarter: 2025Q4

REPORT INFORMATION
  Report Type: Report from Study
  Country: EU (occurrence: EU)
  Receive Date: 20251123
  Receipt Date: 20251127
  Transmission Date: 20260118
  Serious: Yes (Disabling, Other)
  Sender: ASTELLAS
  Company Number: None

PATIENT
  Age: 72 Year
  Sex: Male
  Weight: 72 kg

DRUGS (1)
  1. PADCEV [Suspect]
     Active Substance: ENFORTUMAB VEDOTIN-EJFV
     Indication: Bladder cancer
     Dosage: 1.25 MG/KG 3 WEEKS OUT OF 4, I.E. 90 MG ON D1, D8 AND D15
     Route: 042
     Dates: start: 20240104, end: 20241121

REACTIONS (2)
  - Skin toxicity [Recovering/Resolving]
  - Neuropathy peripheral [Not Recovered/Not Resolved]

NARRATIVE: CASE EVENT DATE: 20241101
